FAERS Safety Report 9893152 (Version 1)
Quarter: 2014Q1

REPORT INFORMATION
  Report Type: Report from Study
  Country: US (occurrence: US)
  Receive Date: 20140213
  Receipt Date: 20140213
  Transmission Date: 20141002
  Serious: Yes (Other)
  Sender: FDA-Public Use
  Company Number: US-ROCHE-1327685

PATIENT
  Sex: Male

DRUGS (7)
  1. AVASTIN [Suspect]
     Indication: COLON CANCER
     Route: 042
  2. GRANISETRON [Suspect]
     Indication: COLON CANCER
     Route: 042
  3. LEVOLEUCOVORIN CALCIUM [Concomitant]
     Route: 042
  4. DEXAMETHASONE [Concomitant]
     Route: 042
  5. FLUOROURACIL [Concomitant]
     Route: 042
  6. FLUOROURACIL [Concomitant]
     Route: 042
  7. OXALIPLATIN [Concomitant]
     Route: 042

REACTIONS (10)
  - Metastases to lung [Unknown]
  - Gastrointestinal haemorrhage [Unknown]
  - Malaise [Unknown]
  - Fatigue [Unknown]
  - Amnesia [Unknown]
  - Anaemia [Unknown]
  - Neutropenia [Unknown]
  - Nocturia [Unknown]
  - Drug hypersensitivity [Unknown]
  - Proteinuria [Unknown]
